FAERS Safety Report 18387841 (Version 1)
Quarter: 2020Q4

REPORT INFORMATION
  Report Type: Other
  Country: CA (occurrence: CA)
  Receive Date: 20201015
  Receipt Date: 20201015
  Transmission Date: 20210114
  Serious: Yes (Life-Threatening, Congenital Anomaly, Other)
  Sender: FDA-Public Use
  Company Number: CA-APOTEX-2020AP019795

PATIENT
  Sex: Male
  Weight: 4 kg

DRUGS (2)
  1. APO-CITALOPRAM [Suspect]
     Active Substance: CITALOPRAM HYDROBROMIDE
     Indication: PRODUCT USED FOR UNKNOWN INDICATION
     Dosage: UNK, QD
     Route: 064
  2. OMEPRAZOLE. [Concomitant]
     Active Substance: OMEPRAZOLE
     Indication: PRODUCT USED FOR UNKNOWN INDICATION
     Dosage: UNK
     Route: 065

REACTIONS (9)
  - Trismus [Recovered/Resolved]
  - Floppy infant [Recovered/Resolved]
  - Intensive care [Recovered/Resolved]
  - Hypotonia neonatal [Recovered/Resolved]
  - Cyanosis neonatal [Recovered/Resolved]
  - Neonatal respiratory depression [Recovered/Resolved]
  - Muscle spasticity [Recovered/Resolved]
  - Neonatal hypoxia [Recovered/Resolved]
  - Oxygen therapy [Recovered/Resolved]
